FAERS Safety Report 16217887 (Version 4)
Quarter: 2019Q3

REPORT INFORMATION
  Report Type: Report from Study
  Country: BE (occurrence: BE)
  Receive Date: 20190419
  Receipt Date: 20190718
  Transmission Date: 20191004
  Serious: Yes (Hospitalization, Other)
  Sender: FDA-Public Use
  Company Number: BE-AMGEN-BELCT2016140424

PATIENT
  Age: 65 Year
  Sex: Female
  Weight: 65.1 kg

DRUGS (15)
  1. DABRAFENIB [Suspect]
     Active Substance: DABRAFENIB
     Indication: COLORECTAL CANCER
     Dosage: 300 MILLIGRAM, QD
     Route: 048
     Dates: start: 20140220, end: 20141001
  2. DABRAFENIB [Suspect]
     Active Substance: DABRAFENIB
     Dosage: 300 MILLIGRAM
     Route: 048
     Dates: start: 20150218, end: 20150331
  3. DABRAFENIB [Suspect]
     Active Substance: DABRAFENIB
     Dosage: 200 MILLIGRAM, QD
     Route: 048
     Dates: start: 20160911
  4. TRAMETINIB [Suspect]
     Active Substance: TRAMETINIB
     Dosage: 2 MILLIGRAM, QD
     Route: 048
     Dates: start: 20150218, end: 20150331
  5. TRAMETINIB [Suspect]
     Active Substance: TRAMETINIB
     Dosage: 0.5 MILLIGRAM, QD
     Route: 048
     Dates: start: 20141015, end: 20141029
  6. TRAMETINIB [Suspect]
     Active Substance: TRAMETINIB
     Dosage: 1.5 MILLIGRAM, QD
     Route: 048
     Dates: start: 20150415, end: 20150804
  7. TRAMETINIB [Suspect]
     Active Substance: TRAMETINIB
     Dosage: 1.5 MILLIGRAM, QD
     Route: 048
     Dates: start: 20150819, end: 20160907
  8. DABRAFENIB [Suspect]
     Active Substance: DABRAFENIB
     Dosage: 100 MILLIGRAM, QD
     Route: 048
     Dates: start: 20141015, end: 20141029
  9. DABRAFENIB [Suspect]
     Active Substance: DABRAFENIB
     Dosage: 300 MILLIGRAM, QD
     Route: 048
     Dates: start: 20141030, end: 20150203
  10. PANITUMUMAB [Suspect]
     Active Substance: PANITUMUMAB
     Indication: COLORECTAL CANCER
     Dosage: 343.2 MILLIGRAM
     Route: 041
     Dates: start: 20140220, end: 20140220
  11. DABRAFENIB [Suspect]
     Active Substance: DABRAFENIB
     Dosage: 200 MILLIGRAM, QD
     Route: 048
     Dates: start: 20150415, end: 20150804
  12. DABRAFENIB [Suspect]
     Active Substance: DABRAFENIB
     Dosage: 200 MILLIGRAM, QD
     Route: 048
     Dates: start: 20150819, end: 20160907
  13. TRAMETINIB [Suspect]
     Active Substance: TRAMETINIB
     Dosage: 2 MILLIGRAM, QD
     Route: 048
     Dates: start: 20141030, end: 20150203
  14. TRAMETINIB [Suspect]
     Active Substance: TRAMETINIB
     Dosage: 1.5 MILLIGRAM, QD
     Route: 048
     Dates: start: 20160911
  15. TRAMETINIB [Suspect]
     Active Substance: TRAMETINIB
     Indication: COLORECTAL CANCER
     Dosage: 2 MILLIGRAM, QD
     Route: 048
     Dates: start: 20140220, end: 20141001

REACTIONS (4)
  - Intestinal obstruction [Not Recovered/Not Resolved]
  - Small intestinal obstruction [Recovered/Resolved]
  - Intestinal obstruction [Recovered/Resolved]
  - Small intestinal obstruction [Not Recovered/Not Resolved]

NARRATIVE: CASE EVENT DATE: 20160908
